FAERS Safety Report 8932382 (Version 2)
Quarter: 2012Q4

REPORT INFORMATION
  Report Type: Report from Study
  Country: AU (occurrence: AU)
  Receive Date: 20121128
  Receipt Date: 20121204
  Transmission Date: 20130627
  Serious: Yes (Disabling)
  Sender: FDA-Public Use
  Company Number: AU-ROCHE-1159826

PATIENT
  Age: 83 Year
  Sex: Male

DRUGS (6)
  1. METHOXY POLYETHYLENE GLYCOL-EPOETIN BETA [Suspect]
     Indication: NEPHROGENIC ANAEMIA
     Route: 058
     Dates: start: 20110201
  2. PLAVIX [Concomitant]
  3. SIMVASTATIN [Concomitant]
  4. NORVASC [Concomitant]
  5. RANITIDINE [Concomitant]
  6. LISINOPRIL [Concomitant]

REACTIONS (1)
  - Blood iron decreased [Unknown]
